FAERS Safety Report 11737126 (Version 4)
Quarter: 2015Q4

REPORT INFORMATION
  Report Type: Report from Study
  Country: US (occurrence: US)
  Receive Date: 20151113
  Receipt Date: 20151221
  Transmission Date: 20160304
  Serious: Yes (Death, Life-Threatening, Hospitalization)
  Sender: FDA-Public Use
  Company Number: US-NOVOPROD-463295

PATIENT
  Age: 58 Year
  Sex: Male
  Weight: 85.71 kg

DRUGS (1)
  1. IDEG 100U VIAL [Suspect]
     Active Substance: INSULIN DEGLUDEC
     Indication: TYPE 2 DIABETES MELLITUS
     Dosage: 58 U, QD
     Route: 058
     Dates: start: 20140616, end: 20150825

REACTIONS (1)
  - Pancreatic carcinoma metastatic [Fatal]

NARRATIVE: CASE EVENT DATE: 20150804
